FAERS Safety Report 4683023-7 (Version None)
Quarter: 2005Q2

REPORT INFORMATION
  Report Type: 
  Country: None (occurrence: None)
  Receive Date: 20050606
  Receipt Date: 20050310
  Transmission Date: 20051028
  Serious: Yes (Hospitalization)
  Sender: FDA-Public Use
  Company Number: US-MERCK-0503USA02195

PATIENT
  Age: 63 Year
  Sex: Female
  Weight: 68 kg

DRUGS (3)
  1. VIOXX [Suspect]
     Indication: OSTEOARTHRITIS
     Route: 048
     Dates: start: 20000101, end: 20040601
  2. VIOXX [Suspect]
     Route: 048
     Dates: start: 20000101, end: 20040601
  3. LOTREL [Concomitant]
     Indication: HYPERTENSION
     Route: 065
     Dates: start: 20000101

REACTIONS (20)
  - ADRENAL MASS [None]
  - AORTIC ANEURYSM [None]
  - ARTERIAL OCCLUSIVE DISEASE [None]
  - BLOOD HOMOCYSTEINE INCREASED [None]
  - CARDIAC FAILURE CONGESTIVE [None]
  - CORONARY ARTERY DISEASE [None]
  - DIARRHOEA [None]
  - DIVERTICULUM [None]
  - DUODENAL ULCER [None]
  - EMOTIONAL DISTRESS [None]
  - FATIGUE [None]
  - GASTROINTESTINAL HAEMORRHAGE [None]
  - GASTROOESOPHAGEAL REFLUX DISEASE [None]
  - HYPERLIPIDAEMIA [None]
  - HYPOXIA [None]
  - INTERVERTEBRAL DISC DEGENERATION [None]
  - MYOCARDIAL INFARCTION [None]
  - OSTEOPOROSIS [None]
  - PERIPHERAL VASCULAR DISORDER [None]
  - URINARY TRACT INFECTION [None]
